FAERS Safety Report 25924675 (Version 1)
Quarter: 2025Q4

REPORT INFORMATION
  Report Type: Spontaneous
  Country: US (occurrence: None)
  Receive Date: 20251012
  Receipt Date: 20251012
  Transmission Date: 20260118
  Serious: Yes (Disabling)
  Sender: FDA-CTU
  Company Number: None

PATIENT
  Age: 54 Year
  Sex: Female

DRUGS (14)
  1. TERBUTALINE [Suspect]
     Active Substance: TERBUTALINE
     Indication: Uterine hypertonus
     Dosage: OTHER FREQUENCY : CONTINUOUS;?OTHER ROUTE : INFUSION;?
     Route: 050
     Dates: start: 20030901, end: 20031203
  2. ZELNORM [Suspect]
     Active Substance: TEGASEROD MALEATE
  3. BOTOX [Suspect]
     Active Substance: ONABOTULINUMTOXINA
  4. TRULANCE [Suspect]
     Active Substance: PLECANATIDE
  5. LINZESS [Suspect]
     Active Substance: LINACLOTIDE
  6. AMITIZA [Suspect]
     Active Substance: LUBIPROSTONE
  7. IBSRELA [Suspect]
     Active Substance: TENAPANOR HYDROCHLORIDE
  8. DEVICE [Concomitant]
     Active Substance: DEVICE
  9. ATORVASTATIN [Concomitant]
     Active Substance: ATORVASTATIN
  10. ELIQUIS [Concomitant]
     Active Substance: APIXABAN
  11. Opeprazole [Concomitant]
  12. PROMETHAZINE [Concomitant]
     Active Substance: PROMETHAZINE HYDROCHLORIDE
  13. Giner supplements [Concomitant]
  14. DEVICE [Suspect]
     Active Substance: DEVICE

REACTIONS (7)
  - Constipation [None]
  - Urinary incontinence [None]
  - Sacral pain [None]
  - Electrocardiogram QT prolonged [None]
  - Palpitations [None]
  - Dyspnoea [None]
  - Impaired quality of life [None]

NARRATIVE: CASE EVENT DATE: 20031203
